FAERS Safety Report 5061023-5 (Version None)
Quarter: 2006Q3

REPORT INFORMATION
  Report Type: 
  Country: None (occurrence: None)
  Receive Date: 20060719
  Receipt Date: 20060719
  Transmission Date: 20061208
  Serious: Yes (Hospitalization)
  Sender: FDA-Public Use
  Company Number: None

PATIENT
  Age: 53 Year
  Sex: Female
  Weight: 49.8957 kg

DRUGS (11)
  1. OPTIMARK [Suspect]
     Indication: CORONARY ARTERY DISEASE
     Dosage: 44 CC ONCE IONTOPHORES
     Route: 044
     Dates: start: 20050418, end: 20050418
  2. OPTIMARK [Suspect]
     Indication: VENTRICULAR DYSFUNCTION
     Dosage: 44 CC ONCE IONTOPHORES
     Route: 044
     Dates: start: 20050418, end: 20050418
  3. ASPIRIN [Concomitant]
  4. ATENOLOL [Concomitant]
  5. ATORVASTATIN CALCIUM [Concomitant]
  6. CLOPIDOGREL [Concomitant]
  7. IRON [Concomitant]
  8. ZETIA [Concomitant]
  9. HYDROCORTISONE TAB [Concomitant]
  10. LISINOPRIL [Concomitant]
  11. METFORMIN [Concomitant]

REACTIONS (4)
  - ASTHENIA [None]
  - BLOOD GLUCOSE DECREASED [None]
  - DEPRESSED LEVEL OF CONSCIOUSNESS [None]
  - HYPERHIDROSIS [None]
